FAERS Safety Report 7627203-7 (Version None)
Quarter: 2011Q3

REPORT INFORMATION
  Report Type: 
  Country: None (occurrence: None)
  Receive Date: 20110721
  Receipt Date: 20110711
  Transmission Date: 20111222
  Serious: Yes (Hospitalization)
  Sender: FDA-Public Use
  Company Number: CA-JNJFOC-20110705196

PATIENT
  Sex: Male
  Weight: 83 kg

DRUGS (19)
  1. PERINDOPRIL ERBUMINE [Concomitant]
     Route: 065
     Dates: start: 20110603
  2. CELEBREX [Concomitant]
     Route: 065
     Dates: start: 20110603
  3. ARAVA [Concomitant]
     Route: 065
     Dates: start: 20110603
  4. LYRICA [Concomitant]
     Route: 065
     Dates: start: 20110603
  5. METOPROLOL SUCCINATE [Concomitant]
     Route: 065
     Dates: start: 20110603
  6. AVELOX [Concomitant]
     Route: 065
  7. CALCIUM+VITAMIN D [Concomitant]
     Route: 065
     Dates: start: 20110603
  8. ASAPHEN [Concomitant]
     Route: 065
     Dates: start: 20110603
  9. NITROGLYCERIN [Concomitant]
     Route: 065
     Dates: start: 20110603
  10. SPIRIVA [Concomitant]
     Route: 048
     Dates: start: 20110603
  11. PLAVIX [Concomitant]
     Route: 065
     Dates: start: 20110603
  12. CLOBETASOL PROPIONATE [Concomitant]
     Route: 065
     Dates: start: 20110430
  13. LIPITOR [Concomitant]
     Route: 065
     Dates: start: 20110603
  14. ALENDRONATE SODIUM [Concomitant]
     Route: 065
     Dates: start: 20110603
  15. AMOXICILLIN AND CLAVULANATE POTASSIUM [Concomitant]
     Route: 065
     Dates: start: 20110603
  16. PREDNISONE [Concomitant]
     Route: 065
     Dates: start: 20110503
  17. SYNTHROID [Concomitant]
     Dosage: 0.075 (UNITS UNSPECIFIED)
     Route: 065
     Dates: start: 20110603
  18. REMICADE [Suspect]
     Indication: RHEUMATOID ARTHRITIS
     Dosage: FOR 52 WEEKS  DOSE STRENGTH: 100MG/VIAL
     Route: 042
     Dates: start: 20040501, end: 20110711
  19. NEXIUM [Concomitant]
     Route: 065
     Dates: start: 20110603

REACTIONS (1)
  - MYOCARDIAL INFARCTION [None]
